FAERS Safety Report 6314603-0 (Version None)
Quarter: 2009Q3

REPORT INFORMATION
  Report Type: 
  Country: None (occurrence: None)
  Receive Date: 20090817
  Receipt Date: 20090817
  Transmission Date: 20100115
  Serious: Yes (Other)
  Sender: FDA-Public Use
  Company Number: None

PATIENT
  Age: 46 Year
  Sex: Female
  Weight: 79.5 kg

DRUGS (1)
  1. YAZ [Suspect]
     Indication: UTERINE LEIOMYOMA
     Dosage: 1 PILL DAILY ORAL
     Route: 048
     Dates: start: 20080101, end: 20090401

REACTIONS (5)
  - ANXIETY [None]
  - DYSPNOEA [None]
  - EMOTIONAL DISORDER [None]
  - PALPITATIONS [None]
  - VENTRICULAR EXTRASYSTOLES [None]
